FAERS Safety Report 10577562 (Version 2)
Quarter: 2014Q4

REPORT INFORMATION
  Report Type: Spontaneous
  Country: US (occurrence: US)
  Receive Date: 20141111
  Receipt Date: 20141111
  Transmission Date: 20150529
  Serious: No
  Sender: FDA-Public Use
  Company Number: US-GLAXOSMITHKLINE-A1088476A

PATIENT

DRUGS (6)
  1. VOTRIENT [Suspect]
     Active Substance: PAZOPANIB HYDROCHLORIDE
     Dosage: 400 MG, QD
     Dates: start: 20140815, end: 20140821
  2. ATIVAN [Concomitant]
     Active Substance: LORAZEPAM
  3. DECADRON [Concomitant]
     Active Substance: DEXAMETHASONE
  4. COMPAZINE [Concomitant]
     Active Substance: PROCHLORPERAZINE MALEATE
  5. VOTRIENT [Suspect]
     Active Substance: PAZOPANIB HYDROCHLORIDE
     Indication: MALIGNANT NEOPLASM OF RENAL PELVIS
     Dosage: 200 MG TAKEN AS 800 MG DAILY BY MOUTH
     Route: 048
     Dates: start: 20140714, end: 20150815
  6. CHONDROITIN SULFATE (BOVINE)\GLUCOSAMINE SULFATE [Concomitant]
     Active Substance: CHONDROITIN SULFATE (BOVINE)\GLUCOSAMINE SULFATE

REACTIONS (3)
  - Blood pressure increased [Unknown]
  - Hepatic enzyme increased [Recovering/Resolving]
  - Oral discomfort [Unknown]

NARRATIVE: CASE EVENT DATE: 20140805
